FAERS Safety Report 6534947-7 (Version None)
Quarter: 2010Q1

REPORT INFORMATION
  Report Type: 
  Country: None (occurrence: None)
  Receive Date: 20100111
  Receipt Date: 20100111
  Transmission Date: 20100710
  Serious: Yes (Hospitalization)
  Sender: FDA-Public Use
  Company Number: None

PATIENT
  Sex: Female
  Weight: 69.36 kg

DRUGS (2)
  1. BEVACIZUMAB (RHUMAB VEGF) [Suspect]
     Dosage: 1101 MG
     Dates: end: 20090703
  2. PACLITAXEL [Suspect]
     Dosage: 298 MG
     Dates: end: 20090710

REACTIONS (3)
  - SUPERIOR VENA CAVAL OCCLUSION [None]
  - VENA CAVA THROMBOSIS [None]
  - VENOUS THROMBOSIS [None]
